FAERS Safety Report 4375729-4 (Version None)
Quarter: 2004Q2

REPORT INFORMATION
  Report Type: 
  Country: None (occurrence: None)
  Receive Date: 20040607
  Receipt Date: 20040531
  Transmission Date: 20050107
  Serious: Yes (Death, Disabling)
  Sender: FDA-Public Use
  Company Number: 2003-108942-NL

PATIENT
  Age: 77 Year
  Sex: Male

DRUGS (14)
  1. DANAPAROID SODIUM [Suspect]
     Indication: DISSEMINATED INTRAVASCULAR COAGULATION
     Dosage: 2500 ANTI_XA INTRAVENOUS (NOS)
     Route: 042
     Dates: start: 20030128, end: 20030217
  2. FILGRASTIM [Concomitant]
  3. PREDNISOLONE [Concomitant]
  4. AMINOPHYLLINE [Concomitant]
  5. FAMOTIDINE [Concomitant]
  6. GAMIMUNE N 5% [Concomitant]
  7. BROMHEXINE HYDROCHLORIDE [Concomitant]
  8. VANCOMYCIN HYDROCHLORIDE [Concomitant]
  9. BLUBATOSINE [Concomitant]
  10. MEROPENEM [Concomitant]
  11. PRIMAXIN [Concomitant]
  12. MINOCYCLINE HCL [Concomitant]
  13. MICONAZOLE [Concomitant]
  14. FLUCONAZOLE [Concomitant]

REACTIONS (11)
  - BLOOD BILIRUBIN INCREASED [None]
  - BLOOD LACTATE DEHYDROGENASE INCREASED [None]
  - BLOOD UREA INCREASED [None]
  - CONDITION AGGRAVATED [None]
  - GAMMA-GLUTAMYLTRANSFERASE INCREASED [None]
  - LIVER DISORDER [None]
  - MULTI-ORGAN FAILURE [None]
  - PNEUMONIA [None]
  - RENAL DISORDER [None]
  - SEPSIS [None]
  - WHITE BLOOD CELL COUNT DECREASED [None]
